FAERS Safety Report 7596173 (Version 9)
Quarter: 2013Q3

REPORT INFORMATION
  Report Type: Spontaneous
  Country: US (occurrence: US)
  Receive Date: 20100920
  Receipt Date: 20130822
  Transmission Date: 20140515
  Serious: Yes (Other)
  Sender: FDA-Public Use
  Company Number: US-ASTRAZENECA-2010SE13242

PATIENT
  Age: 48 Year
  Sex: Female
  Weight: 51.7 kg

DRUGS (14)
  1. SEROQUEL [Suspect]
     Indication: INSOMNIA
     Route: 048
  2. SEROQUEL [Suspect]
     Indication: DEPRESSION
     Route: 048
  3. SEROQUEL [Suspect]
     Indication: INSOMNIA
     Route: 048
  4. SEROQUEL [Suspect]
     Indication: DEPRESSION
     Route: 048
  5. SEROQUEL [Suspect]
     Indication: INSOMNIA
     Route: 048
  6. SEROQUEL [Suspect]
     Indication: DEPRESSION
     Route: 048
  7. SEROQUEL [Suspect]
     Indication: INSOMNIA
     Route: 048
  8. SEROQUEL [Suspect]
     Indication: DEPRESSION
     Route: 048
  9. SEROQUEL [Suspect]
     Indication: INSOMNIA
     Route: 048
     Dates: start: 201308
  10. SEROQUEL [Suspect]
     Indication: DEPRESSION
     Route: 048
     Dates: start: 201308
  11. SEROQUEL [Suspect]
     Indication: INSOMNIA
     Route: 048
  12. SEROQUEL [Suspect]
     Indication: DEPRESSION
     Route: 048
  13. OTHER SLEEP MEDICATION [Concomitant]
  14. OTHER MEDICATIONS [Concomitant]

REACTIONS (27)
  - Suicidal ideation [Unknown]
  - Suicidal behaviour [Unknown]
  - Feeling abnormal [Unknown]
  - Anxiety [Unknown]
  - Aggression [Unknown]
  - Depression [Unknown]
  - Insomnia [Unknown]
  - Panic reaction [Unknown]
  - Mood swings [Unknown]
  - Malaise [Unknown]
  - Oropharyngeal pain [Unknown]
  - Malaise [Unknown]
  - Crying [Unknown]
  - Emotional disorder [Unknown]
  - Stress [Unknown]
  - Mental disorder [Unknown]
  - Mental disorder [Unknown]
  - Feeling abnormal [Unknown]
  - Adverse event [Unknown]
  - Psychotic disorder [Unknown]
  - Fatigue [Unknown]
  - Fatigue [Unknown]
  - Restless legs syndrome [Unknown]
  - Sedation [Unknown]
  - Vomiting [Unknown]
  - Drug dose omission [Unknown]
  - Intentional drug misuse [Unknown]
